FAERS Safety Report 7022922-8 (Version None)
Quarter: 2010Q3

REPORT INFORMATION
  Report Type: 
  Country: None (occurrence: None)
  Receive Date: 20100930
  Receipt Date: 20100920
  Transmission Date: 20110219
  Serious: Yes (Other)
  Sender: FDA-Public Use
  Company Number: US-BAXTER-2010BH024049

PATIENT

DRUGS (2)
  1. MESNA [Suspect]
     Indication: PROPHYLAXIS
     Route: 042
     Dates: start: 20100818, end: 20100821
  2. CYCLOPHOSPHAMIDE [Suspect]
     Indication: LEUKAEMIA
     Route: 042
     Dates: start: 20100818, end: 20100821

REACTIONS (1)
  - ADVERSE EVENT [None]
